FAERS Safety Report 11493577 (Version 1)
Quarter: 2015Q3

REPORT INFORMATION
  Report Type: Spontaneous
  Country: US (occurrence: US)
  Receive Date: 20150911
  Receipt Date: 20150911
  Transmission Date: 20151125
  Serious: No
  Sender: FDA-Public Use
  Company Number: US-ROCHE-1014994

PATIENT
  Sex: Male

DRUGS (6)
  1. TELAPREVIR [Suspect]
     Active Substance: TELAPREVIR
     Indication: CHRONIC HEPATITIS C
     Route: 065
     Dates: start: 20110805
  2. TELAPREVIR [Suspect]
     Active Substance: TELAPREVIR
     Route: 065
  3. RIBAVIRIN. [Suspect]
     Active Substance: RIBAVIRIN
     Route: 048
  4. RIBAVIRIN. [Suspect]
     Active Substance: RIBAVIRIN
     Indication: CHRONIC HEPATITIS C
     Route: 048
     Dates: start: 20110805
  5. RIBAVIRIN. [Suspect]
     Active Substance: RIBAVIRIN
     Route: 048
  6. PEGASYS [Suspect]
     Active Substance: PEGINTERFERON ALFA-2A
     Indication: CHRONIC HEPATITIS C
     Route: 058
     Dates: start: 20110805

REACTIONS (9)
  - Fatigue [Unknown]
  - Impaired work ability [Unknown]
  - Blood disorder [Unknown]
  - Cough [Unknown]
  - Memory impairment [Unknown]
  - Pruritus [Unknown]
  - Malaise [Unknown]
  - Dyspnoea [Unknown]
  - Rash [Unknown]
